FAERS Safety Report 7739903-9 (Version None)
Quarter: 2011Q3

REPORT INFORMATION
  Report Type: 
  Country: None (occurrence: None)
  Receive Date: 20110909
  Receipt Date: 20110906
  Transmission Date: 20111222
  Serious: Yes (Death, Hospitalization)
  Sender: FDA-Public Use
  Company Number: PHHY2011CA77041

PATIENT
  Sex: Female

DRUGS (1)
  1. CLOZAPINE [Suspect]
     Dosage: 12.5 MG
     Dates: start: 20110427

REACTIONS (3)
  - HALLUCINATION [None]
  - PARKINSON'S DISEASE [None]
  - DYSPHAGIA [None]
